FAERS Safety Report 22691505 (Version 4)
Quarter: 2023Q4

REPORT INFORMATION
  Report Type: Spontaneous
  Country: DE (occurrence: DE)
  Receive Date: 20230711
  Receipt Date: 20231128
  Transmission Date: 20240110
  Serious: Yes (Hospitalization, Other)
  Sender: FDA-Public Use
  Company Number: DE-PFIZER INC-PV202300117289

PATIENT
  Age: 65 Year
  Sex: Female

DRUGS (6)
  1. PAXLOVID [Interacting]
     Active Substance: NIRMATRELVIR\RITONAVIR
     Indication: COVID-19 treatment
     Dosage: UNK
  2. TACROLIMUS [Interacting]
     Active Substance: TACROLIMUS
     Indication: Renal transplant
     Dosage: UNK
  3. TACROLIMUS [Interacting]
     Active Substance: TACROLIMUS
     Indication: Hypertensive nephropathy
  4. EVEROLIMUS [Interacting]
     Active Substance: EVEROLIMUS
     Indication: Renal transplant
     Dosage: UNK
  5. EVEROLIMUS [Interacting]
     Active Substance: EVEROLIMUS
     Indication: Hypertensive nephropathy
  6. PREDNISOLONE [Concomitant]
     Active Substance: PREDNISOLONE
     Dosage: UNK

REACTIONS (2)
  - Drug interaction [Unknown]
  - Thrombotic microangiopathy [Recovered/Resolved]
